FAERS Safety Report 9580405 (Version 1)
Quarter: 2013Q4

REPORT INFORMATION
  Report Type: Spontaneous
  Country: US (occurrence: None)
  Receive Date: 20131001
  Receipt Date: 20131001
  Transmission Date: 20140711
  Serious: Yes (Hospitalization)
  Sender: FDA-Public Use
  Company Number: None

PATIENT
  Age: 59 Year
  Sex: Male
  Weight: 146.8 kg

DRUGS (2)
  1. METOPROLOL [Suspect]
     Indication: HYPERTENSION
     Route: 048
     Dates: start: 20130523, end: 20130531
  2. FUROSEMIDE [Suspect]
     Dosage: 40 MG AM PO
     Route: 048
     Dates: start: 20130523, end: 20130531

REACTIONS (5)
  - Rash [None]
  - Oedema mouth [None]
  - Pruritus [None]
  - Dry mouth [None]
  - Diarrhoea [None]
